FAERS Safety Report 17440003 (Version 5)
Quarter: 2020Q4

REPORT INFORMATION
  Report Type: Spontaneous
  Country: US (occurrence: US)
  Receive Date: 20200220
  Receipt Date: 20201012
  Transmission Date: 20210113
  Serious: Yes (Hospitalization, Other)
  Sender: FDA-Public Use
  Company Number: US-PFIZER INC-2020074153

PATIENT
  Age: 79 Year
  Sex: Female
  Weight: 74.83 kg

DRUGS (20)
  1. PREMARIN [Suspect]
     Active Substance: ESTROGENS, CONJUGATED
     Dosage: 0.625 MG, ALTERNATE DAY
  2. PREMARIN [Suspect]
     Active Substance: ESTROGENS, CONJUGATED
     Indication: HOT FLUSH
     Dosage: UNK UNK, DAILY
     Dates: start: 1972
  3. ATENOLOL. [Concomitant]
     Active Substance: ATENOLOL
     Dosage: 50 MG, 1X/DAY (NOON)
     Dates: start: 199311
  4. MAGNESIUM [Concomitant]
     Active Substance: MAGNESIUM
     Dosage: 400 MG, 2X/DAY (MORNING AND EVENING)
     Dates: start: 201310
  5. FISH OIL [Concomitant]
     Active Substance: FISH OIL
     Dosage: 1200 MG, DAILY (EVENING)
     Dates: start: 201507
  6. CRANBERRY. [Concomitant]
     Active Substance: CRANBERRY
     Dosage: UNK UNK, DAILY
     Dates: start: 2018
  7. PREMARIN [Suspect]
     Active Substance: ESTROGENS, CONJUGATED
     Dosage: 0.625 MG, ONE EVERY THREE DAYS
  8. ELIQUIS [Concomitant]
     Active Substance: APIXABAN
     Dosage: 2.5 MG, 2X/DAY
     Dates: start: 201508
  9. VITAMIN C [Concomitant]
     Active Substance: ASCORBIC ACID
     Dosage: 600 MG, DAILY
  10. NITROGLYCERIN. [Concomitant]
     Active Substance: NITROGLYCERIN
     Dosage: 1/150TH, AS NEEDED
     Dates: start: 200007
  11. POTASSIUM [Concomitant]
     Active Substance: POTASSIUM
     Dosage: 2 DF, UNK
     Dates: start: 201305
  12. ACETAMINOPHEN. [Concomitant]
     Active Substance: ACETAMINOPHEN
     Dosage: 650 MG, UNK (2 EXTRA STRENGTH EVERY OTHER MORNING AND 2 MORE EVERY EVENING)
     Dates: start: 1993
  13. LOSARTAN. [Concomitant]
     Active Substance: LOSARTAN
     Dosage: 100-12-5 MG, 1X/DAY (NOON)
     Dates: start: 201601
  14. CALTRATE + D [CALCIUM CARBONATE;ERGOCALCIFEROL] [Concomitant]
     Dosage: UNK UNK, ALTERNATE DAY (EVERY OTHER DAY)
     Dates: start: 2018
  15. PREMARIN [Suspect]
     Active Substance: ESTROGENS, CONJUGATED
     Indication: MEMORY IMPAIRMENT
     Dosage: 0.625 MG, ALTERNATE DAY (EVERY OTHER MORNING)/[TAKE EVERY OTHER DAY]
  16. LEVOTHYROXINE. [Concomitant]
     Active Substance: LEVOTHYROXINE
     Dosage: 75 MG, 1X/DAY [75 MG (PER DAY HALF HOUR BEFORE BREAKFAST)
     Dates: start: 199709
  17. GEMFIBROZIL. [Concomitant]
     Active Substance: GEMFIBROZIL
     Dosage: 600 MG, 1X/DAY (NOON)
     Dates: start: 201205
  18. FUROSEMIDE. [Concomitant]
     Active Substance: FUROSEMIDE
     Dosage: 40 MG, EVERY 3 OR 4TH DAY
     Dates: start: 201305
  19. SYSTANE (HYPROMELLOSE 2910 (4000 MPA.S)) [Concomitant]
     Active Substance: HYPROMELLOSE 2910 (4000 MPA.S)
     Dosage: 1 GTT, 3-4 TIMES A DAY (1 DROP EACH EYE)
     Dates: start: 200205
  20. PRAVASTATIN. [Concomitant]
     Active Substance: PRAVASTATIN
     Dosage: 80 MG, 1X/DAY (BEDTIME)
     Dates: start: 201205

REACTIONS (10)
  - Glaucoma [Not Recovered/Not Resolved]
  - Macular degeneration [Not Recovered/Not Resolved]
  - Memory impairment [Not Recovered/Not Resolved]
  - Bronchitis [Unknown]
  - Body height decreased [Recovered/Resolved]
  - Ulcer [Recovered/Resolved]
  - Visual impairment [Not Recovered/Not Resolved]
  - Cognitive disorder [Recovered/Resolved]
  - Intentional product misuse [Recovered/Resolved]
  - Off label use [Unknown]

NARRATIVE: CASE EVENT DATE: 2011
